FAERS Safety Report 6986209-1 (Version None)
Quarter: 2010Q3

REPORT INFORMATION
  Report Type: 
  Country: None (occurrence: None)
  Receive Date: 20100915
  Receipt Date: 20090708
  Transmission Date: 20110219
  Serious: No
  Sender: FDA-Public Use
  Company Number: US-WYE-H09663909

PATIENT
  Sex: Female
  Weight: 99.88 kg

DRUGS (3)
  1. PRISTIQ [Suspect]
     Indication: DEPRESSION
     Route: 048
     Dates: start: 20090501, end: 20090101
  2. PRISTIQ [Suspect]
     Route: 048
     Dates: start: 20090101
  3. SUBOXONE [Suspect]
     Dosage: DOSE TITRATED
     Route: 065
     Dates: start: 20090101

REACTIONS (1)
  - OEDEMA [None]
